FAERS Safety Report 8543794-6 (Version None)
Quarter: 2012Q3

REPORT INFORMATION
  Report Type: 
  Country: None (occurrence: None)
  Receive Date: 20120727
  Receipt Date: 20120723
  Transmission Date: 20120928
  Serious: Yes (Hospitalization)
  Sender: FDA-Public Use
  Company Number: US-PFIZER INC-2012178360

PATIENT
  Sex: Male
  Weight: 111 kg

DRUGS (13)
  1. TYGACIL [Suspect]
     Dosage: 50 MG, EVERY 12 HOURS
     Dates: start: 20120616, end: 20120617
  2. TYGACIL [Suspect]
     Indication: CELLULITIS
     Dosage: 150 MG, DAILY
     Dates: start: 20120613, end: 20120613
  3. TYLENOL [Concomitant]
     Indication: PYREXIA
     Dosage: 650 MG, AS NEEDED
  4. ALLEGRA [Concomitant]
     Dosage: 60 MG,DAILY
  5. PAXIL [Concomitant]
     Dosage: 20 MG, DAILY
  6. CHLORTHALIDONE [Concomitant]
     Dosage: 25 MG, DAILY
  7. TYGACIL [Suspect]
     Dosage: 75 MG, EVERY 12 HOURS
     Dates: start: 20120614, end: 20120615
  8. COREG [Concomitant]
     Dosage: 25 MG,EVERY 12 HOURS
  9. CEFEPIME [Concomitant]
     Dosage: 1 G, EVERY 8 HOURS
     Route: 042
  10. LASIX [Concomitant]
     Dosage: 20 MG, DAILY
  11. BENICAR [Concomitant]
     Dosage: 40 MG, DAILY
  12. PROTONIX [Concomitant]
     Dosage: 40 MG, DAILY
  13. HYDRALAZINE [Concomitant]
     Dosage: 20 MG, 3X/DAY, EVERY 8 HOURS

REACTIONS (1)
  - PANCREATITIS ACUTE [None]
